FAERS Safety Report 5224970-7 (Version None)
Quarter: 2007Q1

REPORT INFORMATION
  Report Type: 
  Country: None (occurrence: None)
  Receive Date: 20070131
  Receipt Date: 20070124
  Transmission Date: 20070707
  Serious: Yes (Hospitalization)
  Sender: FDA-Public Use
  Company Number: US-AMGEN-STX206417

PATIENT
  Sex: Male

DRUGS (2)
  1. ENBREL [Suspect]
     Indication: RHEUMATOID ARTHRITIS
     Route: 058
     Dates: start: 20030901
  2. METHOTREXATE [Concomitant]
     Dates: start: 20061101

REACTIONS (4)
  - HIP ARTHROPLASTY [None]
  - INJECTION SITE IRRITATION [None]
  - KNEE ARTHROPLASTY [None]
  - SURGERY [None]
